FAERS Safety Report 8922750 (Version 2)
Quarter: 2012Q4

REPORT INFORMATION
  Report Type: 
  Country: JP (occurrence: JP)
  Receive Date: 20121123
  Receipt Date: 20121217
  Transmission Date: 20130627
  Serious: Yes (Other)
  Sender: FDA-Public Use
  Company Number: PHHY2012JP105739

PATIENT
  Age: 53 Year
  Sex: Male

DRUGS (4)
  1. SANDOSTATIN LAR [Suspect]
     Indication: PANCREATIC NEUROENDOCRINE TUMOUR
  2. TS-1 [Concomitant]
  3. CPT-11 [Concomitant]
  4. CDDP [Concomitant]

REACTIONS (8)
  - Portal vein stenosis [Unknown]
  - Portal hypertension [Unknown]
  - Malignant neoplasm progression [Unknown]
  - Neoplasm [Unknown]
  - Gastrointestinal haemorrhage [Unknown]
  - Jaundice cholestatic [Unknown]
  - Diarrhoea [Unknown]
  - Melaena [Unknown]
